FAERS Safety Report 8160218-1 (Version None)
Quarter: 2012Q1

REPORT INFORMATION
  Report Type: 
  Country: None (occurrence: None)
  Receive Date: 20120223
  Receipt Date: 20120216
  Transmission Date: 20120608
  Serious: Yes (Life-Threatening, Hospitalization)
  Sender: FDA-Public Use
  Company Number: US-PFIZER INC-2012013410

PATIENT
  Sex: Male
  Weight: 43.7 kg

DRUGS (11)
  1. OXYCODONE [Concomitant]
     Indication: PAIN
     Route: 048
  2. AMLODIPINE BESYLATE AND BENAZEPRIL HCL [Concomitant]
     Indication: HYPERTENSION
     Dosage: UNK
     Route: 048
     Dates: start: 20010101
  3. HYDROCODONE [Concomitant]
     Indication: PAIN
     Dosage: UNK
     Route: 048
     Dates: start: 20110715
  4. COLACE [Concomitant]
     Indication: PROPHYLAXIS
     Dosage: UNK
     Route: 048
     Dates: start: 20111128
  5. CONTRAST MEDIA [Suspect]
     Indication: COMPUTERISED TOMOGRAM
     Dosage: UNK
     Dates: start: 20120109, end: 20120109
  6. NAPROXEN [Concomitant]
     Indication: ARTHRALGIA
     Dosage: UNK
     Route: 048
     Dates: start: 20111114
  7. SORAFENIB [Suspect]
     Indication: HEPATIC NEOPLASM MALIGNANT
     Dosage: 200 MG, 2X/DAY
     Route: 048
     Dates: start: 20111128, end: 20120112
  8. TEMSIROLIMUS [Suspect]
     Indication: HEPATIC NEOPLASM MALIGNANT
     Dosage: 10 MG, WEEKLY
     Route: 042
     Dates: start: 20111121, end: 20120109
  9. FINASTERIDE [Concomitant]
     Dosage: UNK
     Route: 048
     Dates: start: 20090101
  10. METHYL SALICYLATE [Concomitant]
     Indication: ARTHRALGIA
     Dosage: UNK
     Route: 061
     Dates: start: 20010101
  11. MIRALAX [Concomitant]
     Indication: PROPHYLAXIS
     Dosage: UNK
     Route: 048

REACTIONS (2)
  - UROSEPSIS [None]
  - BLOOD CREATININE INCREASED [None]
